FAERS Safety Report 6734322-6 (Version None)
Quarter: 2010Q2

REPORT INFORMATION
  Report Type: 
  Country: None (occurrence: None)
  Receive Date: 20100520
  Receipt Date: 20100511
  Transmission Date: 20101027
  Serious: Yes (Hospitalization, Other)
  Sender: FDA-Public Use
  Company Number: US-NAPPMUNDI-USA-2010-0043514

PATIENT
  Sex: Male

DRUGS (3)
  1. OXYCONTIN [Suspect]
     Indication: BACK PAIN
     Dosage: 40 MG, Q8H
     Route: 048
     Dates: end: 20100112
  2. XANAX [Concomitant]
     Indication: ANXIETY
     Dosage: 0.5 MG, TID
     Dates: start: 20080101, end: 20100201
  3. VICODIN [Concomitant]
     Indication: BREAKTHROUGH PAIN
     Dosage: 7.5 MG, Q8H
     Dates: start: 20020101, end: 20100201

REACTIONS (3)
  - GROIN ABSCESS [None]
  - INTENTIONAL DRUG MISUSE [None]
  - OPEN WOUND [None]
